FAERS Safety Report 7215073-0 (Version None)
Quarter: 2011Q1

REPORT INFORMATION
  Report Type: 
  Country: None (occurrence: None)
  Receive Date: 20110107
  Receipt Date: 20100903
  Transmission Date: 20110831
  Serious: No
  Sender: FDA-Public Use
  Company Number: A0874232A

PATIENT
  Sex: Male

DRUGS (8)
  1. TOPROL-XL [Concomitant]
  2. ZOCOR [Concomitant]
  3. NIACIN [Concomitant]
  4. AVODART [Concomitant]
  5. CARDURA [Concomitant]
  6. LOVAZA [Suspect]
     Dosage: 2CAP TWICE PER DAY
     Route: 048
     Dates: start: 20100101, end: 20100701
  7. PLAVIX [Concomitant]
  8. ASPIRIN [Concomitant]

REACTIONS (2)
  - FAECAL INCONTINENCE [None]
  - DIARRHOEA [None]
